FAERS Safety Report 7349589-3 (Version None)
Quarter: 2011Q1

REPORT INFORMATION
  Report Type: 
  Country: None (occurrence: None)
  Receive Date: 20110314
  Receipt Date: 20110307
  Transmission Date: 20110831
  Serious: Yes (Other)
  Sender: FDA-Public Use
  Company Number: US-SANOFI-AVENTIS-2011SA014606

PATIENT
  Age: 64 Year
  Sex: Male

DRUGS (12)
  1. DEXAMETHASONE [Concomitant]
     Dates: start: 20101114
  2. NEULASTA [Concomitant]
  3. HYDROCHLOROTHIAZIDE [Concomitant]
  4. PREDNISONE [Suspect]
     Indication: PROSTATE CANCER
     Route: 048
     Dates: start: 20101115
  5. MULTI-VITAMINS [Concomitant]
  6. DOCETAXEL [Suspect]
     Dosage: EVERY 3 WEEKS
     Route: 041
  7. LUPRON [Concomitant]
     Dates: start: 20101218
  8. CALCIUM/VITAMIN D [Concomitant]
  9. BLINDED THERAPY [Suspect]
     Indication: PROSTATE CANCER
     Route: 048
     Dates: start: 20101115
  10. DOCETAXEL [Suspect]
     Indication: PROSTATE CANCER
     Dosage: EVERY 3 WEEKS
     Route: 041
     Dates: start: 20101115, end: 20101115
  11. ASPIRIN [Concomitant]
     Dates: start: 20101218
  12. ZOMETA [Concomitant]

REACTIONS (1)
  - SQUAMOUS CELL CARCINOMA [None]
